FAERS Safety Report 10576545 (Version 3)
Quarter: 2014Q4

REPORT INFORMATION
  Report Type: Spontaneous
  Country: GB (occurrence: GB)
  Receive Date: 20141111
  Receipt Date: 20141208
  Transmission Date: 20150529
  Serious: Yes (Life-Threatening)
  Sender: FDA-Public Use
  Company Number: GB-WATSON-2014-23784

PATIENT
  Age: 54 Year
  Sex: Male
  Weight: 94 kg

DRUGS (5)
  1. LEVOFLOXACIN (UNKNOWN) [Suspect]
     Active Substance: LEVOFLOXACIN
     Indication: LEGIONELLA INFECTION
     Dosage: 250 MG, DAILY
     Route: 042
     Dates: start: 20141007, end: 20141016
  2. ALFENTANIL [Concomitant]
     Active Substance: ALFENTANIL
     Indication: SEDATION
     Dosage: UNK
     Route: 065
     Dates: start: 20141009
  3. CHLORHEXIDINE GLUCONATE. [Concomitant]
     Active Substance: CHLORHEXIDINE GLUCONATE
     Indication: PRODUCT USED FOR UNKNOWN INDICATION
     Dosage: UNK
     Route: 065
     Dates: start: 20141010
  4. PROPOFOL. [Concomitant]
     Active Substance: PROPOFOL
     Indication: SEDATION
     Dosage: UNK
     Route: 065
     Dates: start: 20141009
  5. RIFAMPICIN [Concomitant]
     Active Substance: RIFAMPIN
     Indication: LEGIONELLA INFECTION
     Dosage: UNK
     Route: 042
     Dates: start: 20141010, end: 20141014

REACTIONS (1)
  - Pulseless electrical activity [Recovered/Resolved]

NARRATIVE: CASE EVENT DATE: 20141016
